FAERS Safety Report 8984721 (Version 1)
Quarter: 2012Q4

REPORT INFORMATION
  Report Type: 
  Country: BD (occurrence: BD)
  Receive Date: 20121226
  Receipt Date: 20121226
  Transmission Date: 20130627
  Serious: Yes (Death)
  Sender: FDA-Public Use
  Company Number: PHHY2012BD119042

PATIENT
  Age: 60 Year
  Sex: Female

DRUGS (2)
  1. EXELON PATCH [Suspect]
     Indication: DEMENTIA
     Dosage: 4.6 mg/ 24 hrs
     Route: 062
     Dates: start: 201102, end: 201104
  2. DONEPEZIL HYDROCHLORIDE [Concomitant]
     Indication: DEMENTIA
     Dosage: 5 mg, daily
     Route: 048
     Dates: start: 201105

REACTIONS (1)
  - Myocardial infarction [Fatal]
